FAERS Safety Report 25434204 (Version 1)
Quarter: 2025Q2

REPORT INFORMATION
  Report Type: Spontaneous
  Country: GB (occurrence: GB)
  Receive Date: 20250613
  Receipt Date: 20250613
  Transmission Date: 20250717
  Serious: Yes (Disabling)
  Sender: MAYNE
  Company Number: GB-MAYNE PHARMA-2025MYN000329

PATIENT

DRUGS (2)
  1. SOLTAMOX [Suspect]
     Active Substance: TAMOXIFEN CITRATE
     Indication: Breast cancer
     Route: 065
     Dates: start: 20180710
  2. SOLTAMOX [Suspect]
     Active Substance: TAMOXIFEN CITRATE
     Indication: Adverse drug reaction
     Route: 065
     Dates: start: 20180710

REACTIONS (3)
  - Chest pain [Not Recovered/Not Resolved]
  - Pruritus [Not Recovered/Not Resolved]
  - Rash erythematous [Not Recovered/Not Resolved]

NARRATIVE: CASE EVENT DATE: 20180710
